FAERS Safety Report 19079536 (Version 1)
Quarter: 2021Q1

REPORT INFORMATION
  Report Type: Other
  Country: IT (occurrence: IT)
  Receive Date: 20210331
  Receipt Date: 20210331
  Transmission Date: 20210420
  Serious: Yes (Disabling, Other)
  Sender: FDA-Public Use
  Company Number: IT-VALIDUS PHARMACEUTICALS LLC-IT-2021VAL000835

PATIENT
  Age: 46 Year
  Sex: Female

DRUGS (7)
  1. BUPROPION HYDROCHLORIDE. [Suspect]
     Active Substance: BUPROPION HYDROCHLORIDE
     Indication: WEIGHT LOSS DIET
     Dosage: 150 MG, QD
     Route: 048
     Dates: start: 20111101
  2. BENZOATEO DE BENCILO [Suspect]
     Active Substance: BENZYL BENZOATE
     Indication: WEIGHT LOSS DIET
     Dosage: 180 MG, QD
     Route: 048
     Dates: start: 20111101
  3. FUROSEMIDE. [Suspect]
     Active Substance: FUROSEMIDE
     Dosage: 9 MG, QD
     Route: 048
     Dates: start: 20111101
  4. SYNEPHRINE [Suspect]
     Active Substance: OXEDRINE
     Indication: WEIGHT LOSS DIET
     Dosage: 120 MG, QD
     Route: 048
     Dates: start: 20111101
  5. FUROSEMIDE. [Suspect]
     Active Substance: FUROSEMIDE
     Indication: WEIGHT LOSS DIET
     Dosage: UNK
     Route: 065
  6. METFORMIN HYDROCHLORIDE. [Suspect]
     Active Substance: METFORMIN HYDROCHLORIDE
     Indication: WEIGHT LOSS DIET
     Dosage: 300 MG, QD
     Route: 048
     Dates: start: 20111101
  7. EPHEDRINE HYDROCHLORIDE [Suspect]
     Active Substance: EPHEDRINE HYDROCHLORIDE
     Indication: WEIGHT LOSS DIET
     Dosage: 135 MG, QD
     Route: 048
     Dates: start: 20111101

REACTIONS (3)
  - Cerebrovascular accident [Recovered/Resolved with Sequelae]
  - Ischaemic stroke [Recovered/Resolved with Sequelae]
  - Aphasia [Recovered/Resolved with Sequelae]

NARRATIVE: CASE EVENT DATE: 20120203
